FAERS Safety Report 21688770 (Version 1)
Quarter: 2022Q4

REPORT INFORMATION
  Report Type: Spontaneous
  Country: US (occurrence: US)
  Receive Date: 20221206
  Receipt Date: 20221206
  Transmission Date: 20230113
  Serious: No
  Sender: FDA-Public Use
  Company Number: US-MYLANLABS-2022M1119926

PATIENT
  Sex: Female
  Weight: 76.66 kg

DRUGS (1)
  1. NEURONTIN [Suspect]
     Active Substance: GABAPENTIN
     Indication: Pain
     Dosage: UNK UNK, BID
     Route: 065

REACTIONS (7)
  - Rash [Unknown]
  - Pain [Not Recovered/Not Resolved]
  - Anxiety [Unknown]
  - Skin discolouration [Not Recovered/Not Resolved]
  - Skin mass [Not Recovered/Not Resolved]
  - Hyperkeratosis [Unknown]
  - Incorrect dose administered [Unknown]
